FAERS Safety Report 12475687 (Version 2)
Quarter: 2016Q2

REPORT INFORMATION
  Report Type: Spontaneous
  Country: CN (occurrence: CN)
  Receive Date: 20160617
  Receipt Date: 20160623
  Transmission Date: 20160815
  Serious: Yes (Life-Threatening, Hospitalization)
  Sender: FDA-Public Use
  Company Number: CN-SYMPLMED PHARMACEUTICALS-2016SYMPLMED000241

PATIENT

DRUGS (6)
  1. LORATADINE. [Concomitant]
     Active Substance: LORATADINE
     Indication: ECZEMA
     Dosage: UNK
     Dates: start: 20160531
  2. ACERTIL [Suspect]
     Active Substance: PERINDOPRIL ARGININE
     Indication: HYPERTENSION
     Dosage: 4 MG, QD
     Route: 048
     Dates: start: 20160601, end: 20160601
  3. SODIUM BICARBONATE. [Concomitant]
     Active Substance: SODIUM BICARBONATE
     Indication: PRODUCT USED FOR UNKNOWN INDICATION
     Dosage: 0.5 G, TID
     Route: 048
     Dates: start: 20160601
  4. PIPERAZINE [Concomitant]
     Active Substance: PIPERAZINE
     Indication: PRODUCT USED FOR UNKNOWN INDICATION
     Dosage: 100 MG, TID
     Dates: start: 20160601
  5. HALOMETASONE [Concomitant]
     Active Substance: HALOMETASONE
     Indication: ECZEMA
     Dosage: UNK
     Dates: start: 20160531
  6. CHINESE TRADITIONAL MEDICINE [Concomitant]
     Active Substance: UNSPECIFIED INGREDIENT
     Indication: PRODUCT USED FOR UNKNOWN INDICATION
     Dosage: 1 G, TID
     Dates: start: 20160601

REACTIONS (13)
  - Pharyngeal erythema [Recovered/Resolved]
  - Supraventricular extrasystoles [Unknown]
  - Oedema peripheral [Unknown]
  - Pleural effusion [Unknown]
  - Gout [Unknown]
  - Hepatic lesion [Unknown]
  - Angioedema [Recovered/Resolved]
  - Pigmentation disorder [Unknown]
  - Atrioventricular block first degree [Unknown]
  - Dyspnoea [Recovered/Resolved]
  - Oropharyngeal pain [Recovered/Resolved]
  - Electrocardiogram QT prolonged [Unknown]
  - Chronic hepatitis B [Unknown]

NARRATIVE: CASE EVENT DATE: 20160601
